FAERS Safety Report 4621889-7 (Version None)
Quarter: 2005Q1

REPORT INFORMATION
  Report Type: 
  Country: None (occurrence: None)
  Receive Date: 20050329
  Receipt Date: 20041004
  Transmission Date: 20050727
  Serious: Yes (Other)
  Sender: FDA-Public Use
  Company Number: US-GLAXOSMITHKLINE-A0529241A

PATIENT
  Sex: Male
  Weight: 86.4 kg

DRUGS (2)
  1. PAXIL [Suspect]
     Indication: PANIC ATTACK
     Route: 048
     Dates: start: 19970101
  2. TRAZODONE HCL [Concomitant]
     Indication: INSOMNIA
     Route: 048
     Dates: start: 20040101

REACTIONS (11)
  - AGITATION [None]
  - ANXIETY [None]
  - DEPENDENCE [None]
  - DIZZINESS [None]
  - DRUG DEPENDENCE [None]
  - DRUG WITHDRAWAL SYNDROME [None]
  - FATIGUE [None]
  - FLASHBACK [None]
  - INSOMNIA [None]
  - IRRITABILITY [None]
  - TINNITUS [None]
